FAERS Safety Report 9610369 (Version 3)
Quarter: 2013Q4

REPORT INFORMATION
  Report Type: Report from Study
  Country: DE (occurrence: DE)
  Receive Date: 20131009
  Receipt Date: 20131017
  Transmission Date: 20140711
  Serious: Yes (Life-Threatening, Hospitalization, Other)
  Sender: FDA-Public Use
  Company Number: DE-TEVA-436668USA

PATIENT
  Age: 68 Year
  Sex: Male
  Weight: 79 kg

DRUGS (6)
  1. BENDAMUSTINE [Suspect]
     Indication: MANTLE CELL LYMPHOMA
     Dosage: UNKNOWN/D
     Route: 042
     Dates: start: 20130723
  2. BENDAMUSTINE [Suspect]
     Route: 042
     Dates: start: 20130429
  3. RITUXIMAB [Suspect]
     Indication: MANTLE CELL LYMPHOMA
     Dosage: UNKNOWN/D
     Route: 042
     Dates: start: 20130722
  4. RITUXIMAB [Suspect]
     Route: 042
     Dates: start: 20130426
  5. TEMSIROLIMUS [Suspect]
     Indication: MANTLE CELL LYMPHOMA
     Dosage: UNKNOWN/D
     Route: 042
     Dates: start: 20130723, end: 20130724
  6. TEMSIROLIMUS [Suspect]
     Route: 042
     Dates: start: 20130430

REACTIONS (5)
  - Respiratory failure [Recovering/Resolving]
  - Aneurysm [Recovered/Resolved]
  - Sepsis [Recovering/Resolving]
  - Renal failure acute [Recovering/Resolving]
  - Erysipelas [Recovering/Resolving]
